FAERS Safety Report 21647717 (Version 4)
Quarter: 2022Q4

REPORT INFORMATION
  Report Type: Spontaneous
  Country: IT (occurrence: None)
  Receive Date: 20221128
  Receipt Date: 20221216
  Transmission Date: 20230113
  Serious: Yes (Other)
  Sender: FDA-Public Use
  Company Number: IT-ROCHE-3224420

PATIENT
  Sex: Female

DRUGS (8)
  1. RITUXIMAB [Suspect]
     Active Substance: RITUXIMAB
     Indication: Diffuse large B-cell lymphoma
     Dosage: 1ST SYSTEMIC TREATMENT, R-CHOP
     Route: 065
     Dates: start: 20170906, end: 20180105
  2. IFOSFAMIDE [Suspect]
     Active Substance: IFOSFAMIDE
     Indication: Diffuse large B-cell lymphoma
     Dosage: 2ND SYSTEMIC TREATMENT, R-MINI-IEV
     Route: 065
     Dates: start: 20190601, end: 20190730
  3. EPIRUBICIN [Suspect]
     Active Substance: EPIRUBICIN
     Indication: Diffuse large B-cell lymphoma
     Dosage: 2ND SYSTEMIC TREATMENT, R-MINI-IEV
     Route: 065
     Dates: start: 20190601, end: 20190730
  4. ETOPOSIDE [Suspect]
     Active Substance: ETOPOSIDE
     Indication: Diffuse large B-cell lymphoma
     Dosage: 2ND SYSTEMIC TREATMENT, R-MINI-IEV
     Route: 065
     Dates: start: 20190601, end: 20190730
  5. CYCLOPHOSPHAMIDE [Concomitant]
     Active Substance: CYCLOPHOSPHAMIDE
     Dates: start: 20170906, end: 20180105
  6. DOXORUBICIN HYDROCHLORIDE [Concomitant]
     Active Substance: DOXORUBICIN HYDROCHLORIDE
     Dates: start: 20170906, end: 20180105
  7. VINCRISTINE [Concomitant]
     Active Substance: VINCRISTINE
     Dates: start: 20170906, end: 20180105
  8. PREDNISONE [Concomitant]
     Active Substance: PREDNISONE
     Dates: start: 20170906, end: 20180105

REACTIONS (2)
  - Toxicity to various agents [Unknown]
  - Neoplasm [Unknown]
